FAERS Safety Report 4526868-6 (Version None)
Quarter: 2004Q4

REPORT INFORMATION
  Report Type: 
  Country: None (occurrence: None)
  Receive Date: 20041213
  Receipt Date: 20041129
  Transmission Date: 20050328
  Serious: Yes (Other)
  Sender: FDA-Public Use
  Company Number: 2004102113

PATIENT
  Age: 59 Year
  Sex: Female
  Weight: 63 kg

DRUGS (4)
  1. AROMASIN [Suspect]
     Indication: BREAST CANCER
     Dosage: 25 MG (25 MG, EVER DAY), ORAL
     Route: 048
     Dates: start: 20030729, end: 20040820
  2. ESTAZOLAM [Concomitant]
  3. ATORVASTATIN CALCIUM [Concomitant]
  4. ESOMEPRAZOLE MAGNESIUM [Concomitant]

REACTIONS (2)
  - CYTOLYTIC HEPATITIS [None]
  - DIARRHOEA [None]
